FAERS Safety Report 16586373 (Version 2)
Quarter: 2019Q3

REPORT INFORMATION
  Report Type: Spontaneous
  Country: FR (occurrence: FR)
  Receive Date: 20190717
  Receipt Date: 20190816
  Transmission Date: 20191004
  Serious: Yes (Other)
  Sender: FDA-Public Use
  Company Number: FR-MYLANLABS-2019M1066705

PATIENT
  Age: 75 Year
  Sex: Female

DRUGS (2)
  1. GALVUS [Interacting]
     Active Substance: VILDAGLIPTIN
     Indication: TYPE 2 DIABETES MELLITUS
     Dosage: UNK
     Route: 048
     Dates: start: 2016
  2. RAMIPRIL. [Suspect]
     Active Substance: RAMIPRIL
     Indication: INFARCTION
     Dosage: 1.25 MILLIGRAM, QD
     Route: 048
     Dates: start: 20190107, end: 20190112

REACTIONS (3)
  - Drug interaction [Recovered/Resolved]
  - Hepatic enzyme increased [Recovering/Resolving]
  - Angioedema [Recovered/Resolved]

NARRATIVE: CASE EVENT DATE: 20190109
